FAERS Safety Report 7016624-1 (Version None)
Quarter: 2010Q3

REPORT INFORMATION
  Report Type: 
  Country: None (occurrence: None)
  Receive Date: 20100927
  Receipt Date: 20100921
  Transmission Date: 20110219
  Serious: Yes (Hospitalization)
  Sender: FDA-Public Use
  Company Number: B0675450A

PATIENT
  Sex: Female

DRUGS (7)
  1. AUGMENTIN '125' [Suspect]
     Route: 048
     Dates: start: 20100810, end: 20100816
  2. CLARITHROMYCIN [Suspect]
     Route: 048
     Dates: start: 20100817, end: 20100817
  3. SOLUPRED [Suspect]
     Route: 048
     Dates: start: 20100817, end: 20100817
  4. NASACORT [Suspect]
     Route: 045
     Dates: start: 20100817, end: 20100817
  5. FOSINOPRIL SODIUM AND HYDROCHLOROTHIAZIDE [Concomitant]
     Dosage: 1UNIT PER DAY
     Route: 065
  6. TANAKAN [Concomitant]
     Dosage: 3UNIT PER DAY
     Route: 065
  7. AZOPT [Concomitant]
     Route: 065

REACTIONS (3)
  - CHEST DISCOMFORT [None]
  - ERYTHEMA [None]
  - PALATAL OEDEMA [None]
